FAERS Safety Report 9181810 (Version 1)
Quarter: 2013Q1

REPORT INFORMATION
  Report Type: Spontaneous
  Country: IT (occurrence: IT)
  Receive Date: 20130322
  Receipt Date: 20130322
  Transmission Date: 20140127
  Serious: Yes (Other)
  Sender: FDA-Public Use
  Company Number: IT-JNJFOC-20130304215

PATIENT
  Sex: 0

DRUGS (7)
  1. DOXORUBICIN [Suspect]
     Indication: PLASMA CELL MYELOMA
     Route: 042
  2. THALIDOMIDE [Suspect]
     Indication: PLASMA CELL MYELOMA
     Dosage: ON DAYS 1-4 AND 9-12
     Route: 048
  3. DEXAMETHASONE [Suspect]
     Indication: PLASMA CELL MYELOMA
     Dosage: ON 1-4 DAYS AND 9-12 DAYS
     Route: 048
  4. BISPHOSPHONATES [Concomitant]
     Route: 065
  5. ANTIBIOTICS [Concomitant]
     Route: 065
  6. COLONY STIMULATING FACTORS [Concomitant]
     Route: 065
  7. ANTIVIRALS NOS [Concomitant]
     Indication: PROPHYLAXIS
     Route: 065

REACTIONS (2)
  - Plasma cell myeloma [Unknown]
  - Neuropathy peripheral [Unknown]
